FAERS Safety Report 11082610 (Version 1)
Quarter: 2015Q2

REPORT INFORMATION
  Report Type: Report from Study
  Country: US (occurrence: US)
  Receive Date: 20150501
  Receipt Date: 20150501
  Transmission Date: 20150821
  Serious: No
  Sender: FDA-Public Use
  Company Number: US-ABBVIE-14P-163-1252681-00

PATIENT
  Age: 71 Year
  Sex: Male
  Weight: 75.36 kg

DRUGS (2)
  1. UNKNOWN CONCOMITANT MEDICATIONS [Concomitant]
     Indication: PRODUCT USED FOR UNKNOWN INDICATION
  2. ANDROGEL [Suspect]
     Active Substance: TESTOSTERONE
     Indication: BLOOD TESTOSTERONE DECREASED
     Dosage: 4 PUMPS PER DAY
     Route: 061
     Dates: start: 2013

REACTIONS (2)
  - Alopecia [Not Recovered/Not Resolved]
  - Hair growth abnormal [Not Recovered/Not Resolved]

NARRATIVE: CASE EVENT DATE: 201406
